FAERS Safety Report 6086141-4 (Version None)
Quarter: 2009Q1

REPORT INFORMATION
  Report Type: 
  Country: None (occurrence: None)
  Receive Date: 20090220
  Receipt Date: 20090211
  Transmission Date: 20090719
  Serious: Yes (Other)
  Sender: FDA-Public Use
  Company Number: JP-GENENTECH-277239

PATIENT

DRUGS (6)
  1. RITUXAN [Suspect]
     Indication: LYMPHOMA
     Dosage: 375 MG/M2, Q2W
  2. CYCLOPHOSPHAMIDE [Suspect]
     Indication: LYMPHOMA
     Dosage: UNK
  3. DOXORUBICIN HCL [Suspect]
     Indication: LYMPHOMA
     Dosage: UNK
  4. ONCOVIN [Suspect]
     Indication: LYMPHOMA
     Dosage: UNK
  5. PREDNISONE TAB [Suspect]
     Indication: LYMPHOMA
     Dosage: UNK
  6. NEUPOGEN [Suspect]
     Indication: LYMPHOMA
     Dosage: 50 A?G, UNK
     Route: 058

REACTIONS (1)
  - DISEASE PROGRESSION [None]
